FAERS Safety Report 15888464 (Version 1)
Quarter: 2019Q1

REPORT INFORMATION
  Report Type: Spontaneous
  Country: PL (occurrence: PL)
  Receive Date: 20190130
  Receipt Date: 20190130
  Transmission Date: 20190417
  Serious: Yes (Hospitalization)
  Sender: FDA-Public Use
  Company Number: PL-TEVA-2019-PL-1004037

PATIENT
  Age: 47 Year
  Sex: Female

DRUGS (3)
  1. HYDROXYZINE [Suspect]
     Active Substance: HYDROXYZINE HYDROCHLORIDE
     Dosage: 2 MILLIGRAM DAILY;
  2. HYDROXYZINE [Suspect]
     Active Substance: HYDROXYZINE HYDROCHLORIDE
     Dosage: 4 MILLIGRAM DAILY;
  3. HYDROXYZINE [Suspect]
     Active Substance: HYDROXYZINE HYDROCHLORIDE
     Dosage: 25 MILLIGRAM DAILY;

REACTIONS (5)
  - Drug hypersensitivity [Recovered/Resolved]
  - Bronchospasm [Recovered/Resolved]
  - Pruritus generalised [Recovered/Resolved]
  - Eosinophilia [Recovered/Resolved]
  - Dyspnoea [Recovered/Resolved]
